FAERS Safety Report 8126699-4 (Version None)
Quarter: 2012Q1

REPORT INFORMATION
  Report Type: 
  Country: None (occurrence: None)
  Receive Date: 20120210
  Receipt Date: 20120131
  Transmission Date: 20120608
  Serious: No
  Sender: FDA-Public Use
  Company Number: US-BIOGENIDEC-2012BI004098

PATIENT
  Age: 51 Year
  Sex: Female

DRUGS (1)
  1. TYSABRI [Suspect]
     Indication: MULTIPLE SCLEROSIS
     Route: 042

REACTIONS (7)
  - STRESS [None]
  - MULTIPLE SCLEROSIS RELAPSE [None]
  - HYPOAESTHESIA [None]
  - CENTRAL NERVOUS SYSTEM LESION [None]
  - BLOOD PRESSURE INCREASED [None]
  - PAIN IN EXTREMITY [None]
  - SENSORY DISTURBANCE [None]
